FAERS Safety Report 11877787 (Version 1)
Quarter: 2015Q4

REPORT INFORMATION
  Report Type: Spontaneous
  Country: US (occurrence: US)
  Receive Date: 20151230
  Receipt Date: 20151230
  Transmission Date: 20160305
  Serious: Yes (Other)
  Sender: FDA-Public Use
  Company Number: US-BEH-2015057089

PATIENT
  Sex: Female
  Weight: 95 kg

DRUGS (17)
  1. CYMBALTA [Concomitant]
     Active Substance: DULOXETINE HYDROCHLORIDE
  2. COZAAR [Concomitant]
     Active Substance: LOSARTAN POTASSIUM
  3. GLIMEPIRIDE. [Concomitant]
     Active Substance: GLIMEPIRIDE
  4. PROAIR HFA [Concomitant]
     Active Substance: ALBUTEROL SULFATE
  5. ZETIA [Concomitant]
     Active Substance: EZETIMIBE
  6. RANITIDINE [Concomitant]
     Active Substance: RANITIDINE\RANITIDINE HYDROCHLORIDE
  7. SINGULAIR [Concomitant]
     Active Substance: MONTELUKAST SODIUM
  8. HIZENTRA [Suspect]
     Active Substance: HUMAN IMMUNOGLOBULIN G
     Indication: HYPOGAMMAGLOBULINAEMIA
     Route: 058
     Dates: start: 20150611
  9. TRAZODONE [Concomitant]
     Active Substance: TRAZODONE HYDROCHLORIDE
  10. DIPHENHYDRAMINE. [Concomitant]
     Active Substance: DIPHENHYDRAMINE
  11. LMX [Concomitant]
     Active Substance: LIDOCAINE
  12. ACETAMINOPHEN. [Concomitant]
     Active Substance: ACETAMINOPHEN
  13. EPIPEN [Concomitant]
     Active Substance: EPINEPHRINE
  14. FLONASE [Concomitant]
     Active Substance: FLUTICASONE PROPIONATE
  15. LYRICA [Concomitant]
     Active Substance: PREGABALIN
  16. SYNTHROID [Concomitant]
     Active Substance: LEVOTHYROXINE SODIUM
  17. METFORMIN [Concomitant]
     Active Substance: METFORMIN HYDROCHLORIDE

REACTIONS (5)
  - Infection [Unknown]
  - Administration site nodule [Unknown]
  - Administration site erythema [Unknown]
  - Sinusitis [Unknown]
  - Pneumonia aspiration [Unknown]
